FAERS Safety Report 13749138 (Version 1)
Quarter: 2017Q3

REPORT INFORMATION
  Report Type: Report from Study
  Country: DE (occurrence: DE)
  Receive Date: 20170713
  Receipt Date: 20170713
  Transmission Date: 20171127
  Serious: Yes (Hospitalization)
  Sender: FDA-Public Use
  Company Number: DE-UCBSA-2017007256

PATIENT
  Age: 74 Year
  Sex: Male

DRUGS (2)
  1. ROTIGOTINE [Suspect]
     Active Substance: ROTIGOTINE
     Indication: PARKINSON^S DISEASE
     Dosage: 3 MG, ONCE DAILY (QD)
     Route: 062
     Dates: start: 20170215, end: 20170217
  2. ROTIGOTINE [Suspect]
     Active Substance: ROTIGOTINE
     Dosage: 1 MG, ONCE DAILY (QD)
     Route: 062
     Dates: start: 2017, end: 20170612

REACTIONS (3)
  - Gait disturbance [Recovering/Resolving]
  - Vomiting [Not Recovered/Not Resolved]
  - Nausea [Not Recovered/Not Resolved]

NARRATIVE: CASE EVENT DATE: 201702
